FAERS Safety Report 5088390-0 (Version None)
Quarter: 2006Q3

REPORT INFORMATION
  Report Type: 
  Country: None (occurrence: None)
  Receive Date: 20060822
  Receipt Date: 20060815
  Transmission Date: 20061208
  Serious: Yes (Other)
  Sender: FDA-Public Use
  Company Number: S06-BRA-03335-01

PATIENT
  Age: 31 Year
  Sex: Female
  Weight: 70 kg

DRUGS (2)
  1. CITALOPRAM [Suspect]
     Dosage: 6 TABLET ONCE PO
     Route: 048
     Dates: start: 20060731, end: 20060731
  2. TOPAMAX [Suspect]
     Dosage: 60 TABLET ONCE PO
     Route: 048
     Dates: start: 20060731

REACTIONS (2)
  - MULTIPLE DRUG OVERDOSE INTENTIONAL [None]
  - SUICIDE ATTEMPT [None]
